FAERS Safety Report 7654326-9 (Version None)
Quarter: 2011Q3

REPORT INFORMATION
  Report Type: 
  Country: None (occurrence: None)
  Receive Date: 20110803
  Receipt Date: 20110724
  Transmission Date: 20111222
  Serious: Yes (Hospitalization, Other)
  Sender: FDA-Public Use
  Company Number: AU-JNJFOC-20110710463

PATIENT
  Sex: Female

DRUGS (3)
  1. AZATHIOPRINE SODIUM [Concomitant]
     Route: 065
  2. ACETAMINOPHEN [Concomitant]
     Route: 065
  3. REMICADE [Suspect]
     Indication: ANKYLOSING SPONDYLITIS
     Route: 042

REACTIONS (4)
  - ARTHRALGIA [None]
  - RENAL SURGERY [None]
  - KIDNEY INFECTION [None]
  - INFLUENZA LIKE ILLNESS [None]
